FAERS Safety Report 12911990 (Version 3)
Quarter: 2016Q4

REPORT INFORMATION
  Report Type: Spontaneous
  Country: IT (occurrence: IT)
  Receive Date: 20161104
  Receipt Date: 20161122
  Transmission Date: 20170207
  Serious: Yes (Other)
  Sender: FDA-Public Use
  Company Number: IT-ROCHE-1849904

PATIENT
  Age: 40 Year
  Sex: Male

DRUGS (4)
  1. BISOPROLOL FUMARATE/HYDROCHLOROTHIAZIDE [Suspect]
     Active Substance: BISOPROLOL FUMARATE\HYDROCHLOROTHIAZIDE
     Indication: PRODUCT USED FOR UNKNOWN INDICATION
     Route: 048
     Dates: start: 20160325, end: 20160325
  2. VALIUM [Suspect]
     Active Substance: DIAZEPAM
     Indication: PRODUCT USED FOR UNKNOWN INDICATION
     Dosage: 2 MG HARD CAPSULES^ 30 CAPSULES
     Route: 048
     Dates: start: 20160325, end: 20160325
  3. DIAZEPAM. [Suspect]
     Active Substance: DIAZEPAM
     Indication: PRODUCT USED FOR UNKNOWN INDICATION
     Dosage: START DATE 25/MAR/2016
     Route: 048
     Dates: start: 20160325, end: 20160325
  4. VALDORM [Suspect]
     Active Substance: VALERIAN
     Indication: PRODUCT USED FOR UNKNOWN INDICATION
     Dosage: 30 MG CAPSULES^ 30 CAPSULES
     Route: 048
     Dates: start: 20160325, end: 20160325

REACTIONS (3)
  - Alcohol abuse [Unknown]
  - Psychomotor hyperactivity [Recovered/Resolved]
  - Drug abuse [Unknown]

NARRATIVE: CASE EVENT DATE: 20160325
